FAERS Safety Report 5164626-2 (Version None)
Quarter: 2006Q4

REPORT INFORMATION
  Report Type: 
  Country: None (occurrence: None)
  Receive Date: 20061124
  Receipt Date: 20061109
  Transmission Date: 20070319
  Serious: Yes (Hospitalization)
  Sender: FDA-Public Use
  Company Number: 2006142767

PATIENT
  Age: 37 Year
  Sex: Female
  Weight: 75.2971 kg

DRUGS (1)
  1. BEXTRA [Suspect]
     Indication: OSTEONECROSIS
     Dosage: 10 MG, 1 IN 1 D
     Dates: start: 20030610, end: 20050403

REACTIONS (2)
  - CEREBROVASCULAR ACCIDENT [None]
  - TRANSIENT ISCHAEMIC ATTACK [None]
